FAERS Safety Report 4724496-0 (Version None)
Quarter: 2005Q3

REPORT INFORMATION
  Report Type: 
  Country: None (occurrence: None)
  Receive Date: 20050721
  Receipt Date: 20050708
  Transmission Date: 20060218
  Serious: Yes (Hospitalization)
  Sender: FDA-Public Use
  Company Number: T05-JPN-02437-01

PATIENT
  Age: 74 Year
  Sex: Male

DRUGS (5)
  1. MEMANTINE HCL [Suspect]
     Indication: DEMENTIA ALZHEIMER'S TYPE
     Dosage: 20 MG QD PO
     Route: 048
     Dates: start: 20030927, end: 20050630
  2. MEMANTINE HCL [Suspect]
     Indication: DEMENTIA ALZHEIMER'S TYPE
     Dosage: 20 MG QD PO
     Route: 048
     Dates: start: 20050708
  3. SULPIRIDE [Concomitant]
  4. TOCOPHEROL NICOTINATE (TOCOPHEROL) [Concomitant]
  5. BROTIZOLAM [Concomitant]

REACTIONS (10)
  - BLOOD CREATININE INCREASED [None]
  - BLOOD PRESSURE INCREASED [None]
  - BLOOD UREA INCREASED [None]
  - BODY TEMPERATURE INCREASED [None]
  - CHOLANGITIS [None]
  - CHOLECYSTITIS [None]
  - CHOLELITHIASIS [None]
  - DEPRESSED LEVEL OF CONSCIOUSNESS [None]
  - GRIP STRENGTH DECREASED [None]
  - HEART RATE INCREASED [None]
